FAERS Safety Report 9353509 (Version 1)
Quarter: 2013Q2

REPORT INFORMATION
  Report Type: Spontaneous
  Country: US (occurrence: US)
  Receive Date: 20130618
  Receipt Date: 20130618
  Transmission Date: 20140414
  Serious: Yes (Other)
  Sender: FDA-Public Use
  Company Number: US-ELI_LILLY_AND_COMPANY-US201306003975

PATIENT
  Age: 62 Year
  Sex: Male

DRUGS (3)
  1. ALIMTA [Suspect]
     Indication: LUNG NEOPLASM MALIGNANT
     Dosage: 500 MG, CYCLICAL
  2. CARBOPLATIN [Concomitant]
  3. AVASTIN [Concomitant]

REACTIONS (3)
  - Convulsion [Unknown]
  - Migraine [Unknown]
  - Off label use [Not Recovered/Not Resolved]
